FAERS Safety Report 8893334 (Version 1)
Quarter: 2012Q4

REPORT INFORMATION
  Report Type: 
  Country: US (occurrence: US)
  Receive Date: 20121107
  Receipt Date: 20121107
  Transmission Date: 20130627
  Serious: No
  Sender: FDA-Public Use
  Company Number: US-AMGEN-USASP2011053520

PATIENT
  Age: 52 Year
  Sex: Female
  Weight: 82.54 kg

DRUGS (2)
  1. ENBREL [Suspect]
     Indication: PRODUCT USED FOR UNKNOWN INDICATION
     Dosage: 50 mg, qwk
  2. VERAPAMIL [Concomitant]
     Dosage: 180 mg, UNK

REACTIONS (2)
  - Oedema peripheral [Unknown]
  - Rash [Unknown]
